FAERS Safety Report 25230203 (Version 2)
Quarter: 2025Q2

REPORT INFORMATION
  Report Type: Spontaneous
  Country: JP (occurrence: JP)
  Receive Date: 20250423
  Receipt Date: 20250430
  Transmission Date: 20250716
  Serious: Yes (Hospitalization, Other)
  Sender: CELLTRION
  Company Number: JP-JPNKAYAKU-2025JPNK048656

PATIENT

DRUGS (3)
  1. INFLIXIMAB [Suspect]
     Active Substance: INFLIXIMAB
     Indication: Rheumatoid arthritis
     Route: 042
  2. METHOTREXATE [Suspect]
     Active Substance: METHOTREXATE
     Indication: Rheumatoid arthritis
     Dosage: 8 MG/WEEK
     Route: 048
  3. PREDNISOLONE [Suspect]
     Active Substance: PREDNISOLONE
     Indication: Rheumatoid arthritis
     Route: 065

REACTIONS (6)
  - Granulocytopenia [Unknown]
  - Aortic aneurysm [Unknown]
  - COVID-19 [Unknown]
  - Salmonellosis [Unknown]
  - Sepsis [Unknown]
  - Infective aneurysm [Unknown]
